FAERS Safety Report 8200315-5 (Version None)
Quarter: 2012Q1

REPORT INFORMATION
  Report Type: 
  Country: None (occurrence: None)
  Receive Date: 20120312
  Receipt Date: 20120229
  Transmission Date: 20120608
  Serious: Yes (Life-Threatening, Hospitalization, Other)
  Sender: FDA-Public Use
  Company Number: MX-SANOFI-AVENTIS-2012SA013541

PATIENT
  Age: 77 Year
  Sex: Female
  Weight: 55 kg

DRUGS (10)
  1. LANTUS [Suspect]
     Indication: TYPE 2 DIABETES MELLITUS
     Route: 058
     Dates: start: 20070101, end: 20120101
  2. AVAPRO [Concomitant]
     Route: 048
     Dates: start: 20111201
  3. ASPIRIN [Concomitant]
     Indication: THROMBOSIS PROPHYLAXIS
     Route: 048
     Dates: start: 20070101, end: 20110101
  4. LYRICA [Concomitant]
     Route: 048
     Dates: start: 20090101
  5. COPLAVIX [Concomitant]
     Indication: THROMBOSIS PROPHYLAXIS
     Route: 048
     Dates: start: 20110101
  6. LYRICA [Concomitant]
     Route: 048
     Dates: start: 20090101
  7. CHLORPROPAMIDE [Suspect]
     Indication: TYPE 2 DIABETES MELLITUS
     Route: 048
     Dates: start: 20060101
  8. LERCANIDIPINE [Concomitant]
     Route: 048
     Dates: start: 20111201
  9. ANTIHYPERTENSIVES [Concomitant]
     Dates: end: 20111201
  10. PLAVIX [Concomitant]
     Indication: THROMBOSIS PROPHYLAXIS
     Route: 048
     Dates: start: 20070101, end: 20110101

REACTIONS (6)
  - HYPOGLYCAEMIA [None]
  - PARAESTHESIA [None]
  - HYPERGLYCAEMIA [None]
  - HYPERTENSION [None]
  - HYPERAESTHESIA [None]
  - CORONARY ARTERY OCCLUSION [None]
